FAERS Safety Report 8349742-6 (Version None)
Quarter: 2012Q2

REPORT INFORMATION
  Report Type: 
  Country: None (occurrence: None)
  Receive Date: 20120509
  Receipt Date: 20120509
  Transmission Date: 20120825
  Serious: Yes (Hospitalization)
  Sender: FDA-Public Use
  Company Number: None

PATIENT
  Age: 61 Year
  Sex: Male
  Weight: 77.1 kg

DRUGS (2)
  1. PEGINTERFERON ALFA-2A [Suspect]
     Indication: HEPATITIS C
     Dosage: 120 MCG QWEEK SQ
     Route: 058
     Dates: start: 20120130
  2. BOCEPREVIR [Suspect]
     Dosage: 800 MG TID PO
     Route: 048
     Dates: start: 20120227

REACTIONS (6)
  - THROMBOCYTOPENIA [None]
  - DYSPNOEA [None]
  - MALAISE [None]
  - NEUTROPENIA [None]
  - FATIGUE [None]
  - ANAEMIA [None]
